FAERS Safety Report 4526754-1 (Version None)
Quarter: 2004Q4

REPORT INFORMATION
  Report Type: 
  Country: None (occurrence: None)
  Receive Date: 20041213
  Receipt Date: 20041209
  Transmission Date: 20050328
  Serious: Yes (Hospitalization)
  Sender: FDA-Public Use
  Company Number: 2004US-00413

PATIENT
  Age: 2 Year
  Sex: Male

DRUGS (6)
  1. CEFACLOR [Suspect]
     Indication: UPPER RESPIRATORY TRACT INFECTION
     Dosage: UNK MG, BID, ORAL
     Route: 048
     Dates: start: 20041120, end: 20041121
  2. SINGULAIR [Concomitant]
  3. ZYRTEC [Concomitant]
  4. RHINOCORT [Concomitant]
  5. FLOVENT [Concomitant]
  6. ALBUTEROL [Concomitant]

REACTIONS (5)
  - AORTIC DILATATION [None]
  - GENERAL PHYSICAL HEALTH DETERIORATION [None]
  - HYPERTENSION [None]
  - PNEUMONIA MYCOPLASMAL [None]
  - STEVENS-JOHNSON SYNDROME [None]
